FAERS Safety Report 10188716 (Version 1)
Quarter: 2014Q2

REPORT INFORMATION
  Report Type: Spontaneous
  Country: US (occurrence: US)
  Receive Date: 20140522
  Receipt Date: 20140522
  Transmission Date: 20141212
  Serious: No
  Sender: FDA-Public Use
  Company Number: US-SA-2014SA020809

PATIENT
  Age: 61 Year
  Sex: Female

DRUGS (3)
  1. LANTUS SOLOSTAR [Suspect]
     Indication: TYPE 1 DIABETES MELLITUS
     Route: 051
     Dates: start: 20140211
  2. SOLOSTAR [Concomitant]
     Indication: TYPE 1 DIABETES MELLITUS
     Dates: start: 20140211
  3. AFINITOR [Concomitant]

REACTIONS (4)
  - Somnolence [Unknown]
  - Nervous system disorder [Unknown]
  - Blood glucose increased [Unknown]
  - Incorrect product storage [Unknown]
